FAERS Safety Report 10533755 (Version 3)
Quarter: 2020Q3

REPORT INFORMATION
  Report Type: Report from Study
  Country: PL (occurrence: PL)
  Receive Date: 20141022
  Receipt Date: 20141205
  Transmission Date: 20201105
  Serious: Yes (Life-Threatening, Hospitalization, Disabling, Other)
  Sender: FDA-Public Use
  Company Number: PL-JNJFOC-20140617926

PATIENT
  Age: 67 Year
  Sex: Male
  Weight: 69 kg

DRUGS (17)
  1. LORINDEN [Concomitant]
     Indication: PSORIASIS
     Route: 061
  2. RANIGAST [Concomitant]
     Indication: GASTROINTESTINAL DISORDER THERAPY
  3. PYRALGAN [Concomitant]
     Indication: B-CELL LYMPHOMA
     Route: 065
  4. KETONAL [KETOPROFEN] [Concomitant]
     Active Substance: KETOPROFEN
     Indication: B-CELL LYMPHOMA
  5. ESPUMISAN [Concomitant]
     Indication: PROPHYLAXIS
  6. IBRUTINIB [Suspect]
     Active Substance: IBRUTINIB
     Indication: B-CELL LYMPHOMA
     Route: 048
     Dates: start: 20140402
  7. TRANSTEC [Concomitant]
     Active Substance: BUPRENORPHINE
     Indication: B-CELL LYMPHOMA
     Route: 062
  8. MAGNESIUM [Concomitant]
     Active Substance: MAGNESIUM
     Indication: MINERAL SUPPLEMENTATION
     Route: 065
  9. FENTANYL. [Concomitant]
     Active Substance: FENTANYL
     Indication: B-CELL LYMPHOMA
     Route: 065
  10. CLEXANE [Concomitant]
     Active Substance: ENOXAPARIN SODIUM
     Indication: THROMBOSIS PROPHYLAXIS
     Route: 058
  11. IBRUTINIB [Suspect]
     Active Substance: IBRUTINIB
     Route: 048
  12. BELOSALIC [Concomitant]
     Indication: PSORIASIS
     Route: 061
  13. COCOIS [Concomitant]
     Indication: PSORIASIS
     Route: 061
  14. HALIDOR [Concomitant]
     Indication: PROPHYLAXIS
     Route: 048
  15. KALIUM [POTASSIUM] [Concomitant]
     Indication: PROPHYLAXIS
  16. ZALDIAR [Concomitant]
     Active Substance: ACETAMINOPHEN\TRAMADOL HYDROCHLORIDE
     Indication: B-CELL LYMPHOMA
  17. HEMOFER [Concomitant]
     Indication: B-CELL LYMPHOMA

REACTIONS (2)
  - Cerebral infarction [Not Recovered/Not Resolved]
  - Lung abscess [Not Recovered/Not Resolved]

NARRATIVE: CASE EVENT DATE: 20140620
